FAERS Safety Report 13250485 (Version 1)
Quarter: 2017Q1

REPORT INFORMATION
  Report Type: Spontaneous
  Country: US (occurrence: US)
  Receive Date: 20170219
  Receipt Date: 20170219
  Transmission Date: 20170428
  Serious: No
  Sender: FDA-Public Use
  Company Number: US-009507513-1702USA007521

PATIENT

DRUGS (2)
  1. SD-101 [Suspect]
     Active Substance: INVESTIGATIONAL PRODUCT
     Dosage: UNKNOWN
  2. KEYTRUDA [Suspect]
     Active Substance: PEMBROLIZUMAB
     Dosage: UNKNOWN

REACTIONS (10)
  - Chills [Unknown]
  - Injection site erythema [Unknown]
  - Malaise [Unknown]
  - Pyrexia [Unknown]
  - Influenza like illness [Unknown]
  - Injection site pain [Unknown]
  - Myalgia [Unknown]
  - Anaemia [Unknown]
  - Fatigue [Unknown]
  - Headache [Unknown]
